FAERS Safety Report 4642960-X (Version None)
Quarter: 2005Q2

REPORT INFORMATION
  Report Type: 
  Country: None (occurrence: None)
  Receive Date: 20050421
  Receipt Date: 20050404
  Transmission Date: 20051028
  Serious: Yes (Other)
  Sender: FDA-Public Use
  Company Number: CA_050307889

PATIENT
  Age: 18 Year
  Sex: Male
  Weight: 113 kg

DRUGS (1)
  1. ATOMOXETINE HYDROCHLORIDE [Suspect]
     Indication: ATTENTION DEFICIT/HYPERACTIVITY DISORDER
     Dosage: 120 MG IN THE MORNING
     Dates: start: 20021118, end: 20050317

REACTIONS (5)
  - BLOOD CHOLESTEROL INCREASED [None]
  - DIARRHOEA [None]
  - FOOD POISONING [None]
  - HEPATIC STEATOSIS [None]
  - IRRITABILITY [None]
